FAERS Safety Report 18603383 (Version 6)
Quarter: 2021Q3

REPORT INFORMATION
  Report Type: Spontaneous
  Country: CA (occurrence: CA)
  Receive Date: 20201210
  Receipt Date: 20210728
  Transmission Date: 20211014
  Serious: Yes (Hospitalization)
  Sender: FDA-Public Use
  Company Number: CA-CELLTRION INC.-2019CA028144

PATIENT

DRUGS (12)
  1. INFLECTRA [Suspect]
     Active Substance: INFLIXIMAB-DYYB
     Indication: CROHN^S DISEASE
     Dosage: 5 MG/KG BASED ON WEIGHT OF THE DAY, AT 0, 2, 6 WEEKS, THEN EVERY 8 WEEKS (ROUNDED TO NEAREST 100 MG)
     Route: 042
     Dates: start: 20191209
  2. SYNTHROID [Concomitant]
     Active Substance: LEVOTHYROXINE SODIUM
     Dosage: 1 DF
     Route: 065
  3. PREVACID [Concomitant]
     Active Substance: LANSOPRAZOLE
     Dosage: 1 DF
     Route: 065
  4. RIFAMPIN. [Concomitant]
     Active Substance: RIFAMPIN
     Dosage: 1 DF (UNKNOWN FOR 4 MONTHS)
     Route: 065
     Dates: start: 201910
  5. INFLECTRA [Suspect]
     Active Substance: INFLIXIMAB-DYYB
     Dosage: 5 MG/KG BASED ON WEIGHT OF THE DAY, AT 0, 2, 6 WEEKS, THEN EVERY 8 WEEKS
     Route: 042
     Dates: start: 20210308
  6. INFLECTRA [Suspect]
     Active Substance: INFLIXIMAB-DYYB
     Dosage: 5 MG/KG BASED ON WEIGHT OF THE DAY, AT 0, 2, 6 WEEKS, THEN EVERY 8 WEEKS
     Route: 042
     Dates: start: 20200508
  7. INFLECTRA [Suspect]
     Active Substance: INFLIXIMAB-DYYB
     Dosage: 5 MG/KG BASED ON WEIGHT OF THE DAY, AT 0, 2, 6 WEEKS, THEN EVERY 8 WEEKS
     Route: 042
     Dates: start: 20201116, end: 20201116
  8. COVERSYL [Concomitant]
     Active Substance: PERINDOPRIL
     Dosage: 1 DF
     Route: 065
  9. INFLECTRA [Suspect]
     Active Substance: INFLIXIMAB-DYYB
     Dosage: 5 MG/KG BASED ON WEIGHT OF THE DAY, AT 0, 2, 6 WEEKS, THEN EVERY 8 WEEKS
     Route: 042
     Dates: start: 20210428
  10. INFLECTRA [Suspect]
     Active Substance: INFLIXIMAB-DYYB
     Dosage: 5 MG/KG BASED ON WEIGHT OF THE DAY, AT 0, 2, 6 WEEKS, THEN EVERY 8 WEEKS
     Route: 042
     Dates: start: 20210714
  11. INFLECTRA [Suspect]
     Active Substance: INFLIXIMAB-DYYB
     Dosage: 5 MG/KG BASED ON WEIGHT OF THE DAY, AT 0, 2, 6 WEEKS, THEN EVERY 8 WEEKS
     Route: 042
     Dates: start: 20191224
  12. INFLECTRA [Suspect]
     Active Substance: INFLIXIMAB-DYYB
     Dosage: 5 MG/KG BASED ON WEIGHT OF THE DAY, AT 0, 2, 6 WEEKS, THEN EVERY 8 WEEKS
     Route: 042
     Dates: start: 20200717

REACTIONS (10)
  - Salmonella bacteraemia [Recovering/Resolving]
  - Anal fissure [Unknown]
  - Inappropriate schedule of product administration [Unknown]
  - Infusion site extravasation [Unknown]
  - Off label use [Unknown]
  - Infusion site swelling [Unknown]
  - Infusion site pain [Unknown]
  - Pyrexia [Unknown]
  - Gastrointestinal viral infection [Unknown]
  - Pulmonary embolism [Recovering/Resolving]

NARRATIVE: CASE EVENT DATE: 20200717
